APPROVED DRUG PRODUCT: WARFARIN SODIUM
Active Ingredient: WARFARIN SODIUM
Strength: 6MG
Dosage Form/Route: TABLET;ORAL
Application: A040196 | Product #009
Applicant: CHARTWELL RX SCIENCES LLC
Approved: Jul 26, 2000 | RLD: No | RS: No | Type: DISCN